FAERS Safety Report 6017478-2 (Version None)
Quarter: 2008Q4

REPORT INFORMATION
  Report Type: 
  Country: None (occurrence: None)
  Receive Date: 20081223
  Receipt Date: 20081216
  Transmission Date: 20090506
  Serious: Yes (Hospitalization)
  Sender: FDA-Public Use
  Company Number: US-WYE-H07337508

PATIENT
  Sex: Female

DRUGS (8)
  1. PRISTIQ [Suspect]
     Indication: DEPRESSION
  2. SYNTHROID [Suspect]
  3. XOPENEX [Suspect]
  4. ALPRAZOLAM [Suspect]
  5. LOTREL [Suspect]
  6. VYTORIN [Suspect]
  7. METOPROLOL [Suspect]
  8. LASIX [Suspect]

REACTIONS (6)
  - ANXIETY [None]
  - CHEST PAIN [None]
  - DEPRESSION [None]
  - DRUG WITHDRAWAL SYNDROME [None]
  - ECONOMIC PROBLEM [None]
  - HYPERTENSION [None]
